FAERS Safety Report 4383739-6 (Version None)
Quarter: 2004Q2

REPORT INFORMATION
  Report Type: 
  Country: None (occurrence: None)
  Receive Date: 20040608
  Receipt Date: 20030714
  Transmission Date: 20050107
  Serious: Yes (Hospitalization, Other)
  Sender: FDA-Public Use
  Company Number: 200312523BCC

PATIENT
  Age: 69 Year
  Sex: Male

DRUGS (8)
  1. ALEVE [Suspect]
     Dosage: 440 MG, QD, ORAL
     Route: 048
     Dates: end: 20030401
  2. ALEVE [Suspect]
     Dosage: 440 MG, QD, ORAL
     Route: 048
     Dates: end: 20030501
  3. ASPIRIN [Suspect]
     Indication: PROPHYLAXIS
     Dosage: 325 MG, QD, ORAL
     Route: 048
  4. DIGITEK [Concomitant]
  5. HYDROCHLOROTHIAZIDE [Concomitant]
  6. FLECAINIDE ACETATE [Concomitant]
  7. DILTIAZEM [Concomitant]
  8. LOTENSIN [Concomitant]

REACTIONS (7)
  - DRUG HYPERSENSITIVITY [None]
  - FLUSHING [None]
  - HYPERSENSITIVITY [None]
  - PRURITUS [None]
  - SPEECH DISORDER [None]
  - SWOLLEN TONGUE [None]
  - THROAT TIGHTNESS [None]
